FAERS Safety Report 5592765-0 (Version None)
Quarter: 2007Q4

REPORT INFORMATION
  Report Type: 
  Country: None (occurrence: None)
  Receive Date: 20071217
  Receipt Date: 20071025
  Transmission Date: 20080405
  Serious: No
  Sender: FDA-Public Use
  Company Number: BDI-010432

PATIENT
  Age: 67 Year
  Sex: Female

DRUGS (1)
  1. MULTIHANCE [Suspect]
     Indication: NUCLEAR MAGNETIC RESONANCE IMAGING
     Dosage: 12 ML ONCE IV
     Route: 042
     Dates: start: 20071008, end: 20071008

REACTIONS (2)
  - BLOOD PRESSURE DECREASED [None]
  - SYNCOPE [None]
